FAERS Safety Report 18499216 (Version 1)
Quarter: 2020Q4

REPORT INFORMATION
  Report Type: Spontaneous
  Country: JP (occurrence: JP)
  Receive Date: 20201112
  Receipt Date: 20201112
  Transmission Date: 20210114
  Serious: Yes (Other)
  Sender: FDA-Public Use
  Company Number: JP-TAKEDA-2020TUS047729

PATIENT

DRUGS (1)
  1. 476 (MESALAZINE/MESALAMINE) [Suspect]
     Active Substance: MESALAMINE
     Indication: COLITIS ULCERATIVE
     Dosage: UNK
     Route: 048

REACTIONS (10)
  - Pancreatitis [Unknown]
  - Renal disorder [Unknown]
  - Drug intolerance [Unknown]
  - Pyrexia [Unknown]
  - Headache [Unknown]
  - Arthralgia [Unknown]
  - Bradycardia [Unknown]
  - Enterocolitis [Unknown]
  - C-reactive protein increased [None]
  - Vomiting [Unknown]
